FAERS Safety Report 17320596 (Version 1)
Quarter: 2020Q1

REPORT INFORMATION
  Report Type: Other
  Country: US (occurrence: US)
  Receive Date: 20200126
  Receipt Date: 20200126
  Transmission Date: 20200409
  Serious: Yes (Other)
  Sender: FDA-Public Use
  Company Number: US-ACORDA-ACO_157075_2019

PATIENT
  Sex: Male

DRUGS (1)
  1. AMPYRA [Suspect]
     Active Substance: DALFAMPRIDINE
     Indication: MULTIPLE SCLEROSIS
     Dosage: 10 MG, BID
     Route: 048
     Dates: start: 201612

REACTIONS (9)
  - Prostate cancer [Not Recovered/Not Resolved]
  - Diarrhoea [Not Recovered/Not Resolved]
  - Mucous stools [Not Recovered/Not Resolved]
  - Haemorrhoids [Not Recovered/Not Resolved]
  - Flatulence [Not Recovered/Not Resolved]
  - Haematochezia [Not Recovered/Not Resolved]
  - Constipation [Unknown]
  - Abdominal pain [Not Recovered/Not Resolved]
  - Back pain [Not Recovered/Not Resolved]
